FAERS Safety Report 8016962-X (Version None)
Quarter: 2012Q1

REPORT INFORMATION
  Report Type: 
  Country: None (occurrence: None)
  Receive Date: 20120102
  Receipt Date: 20111226
  Transmission Date: 20120608
  Serious: Yes (Other)
  Sender: FDA-Public Use
  Company Number: PHHY2011JP107297

PATIENT
  Age: 50 Year
  Sex: Female

DRUGS (1)
  1. ZOMETA [Suspect]
     Indication: METASTASES TO BONE
     Route: 041

REACTIONS (3)
  - NEOPLASM PROGRESSION [None]
  - OSTEONECROSIS OF JAW [None]
  - NEOPLASM MALIGNANT [None]
